FAERS Safety Report 6698142-3 (Version None)
Quarter: 2010Q2

REPORT INFORMATION
  Report Type: 
  Country: None (occurrence: None)
  Receive Date: 20100427
  Receipt Date: 20100416
  Transmission Date: 20101027
  Serious: Yes (Hospitalization)
  Sender: FDA-Public Use
  Company Number: ZA-PFIZER INC-2008048273

PATIENT
  Age: 54 Year
  Sex: Male
  Weight: 91.4 kg

DRUGS (10)
  1. SUNITINIB MALATE [Suspect]
     Indication: COLORECTAL CANCER
     Dosage: 25 MG, 1X/DAY
     Route: 048
     Dates: start: 20080212, end: 20080603
  2. IRINOTECAN HCL [Suspect]
     Indication: COLORECTAL CANCER
     Dosage: 290 MG, EVERY 2 WEEKS
     Route: 042
     Dates: start: 20080212, end: 20080521
  3. FLUOROURACIL [Suspect]
     Indication: COLORECTAL CANCER
     Dosage: 650 MG, EVERY 2 WEEKS
     Route: 040
     Dates: start: 20080212, end: 20080521
  4. FLUOROURACIL [Suspect]
     Dosage: 3800 MG, INFUSION EVERY 2 WEEKS
     Route: 042
     Dates: start: 20080212, end: 20080523
  5. LEUCOVORIN CALCIUM [Suspect]
     Indication: COLORECTAL CANCER
     Dosage: 320 MG, EVERY 2 WEEKS
     Route: 042
     Dates: start: 20080212, end: 20080521
  6. WARFARIN SODIUM [Concomitant]
     Dosage: DAILY
     Dates: start: 20080304, end: 20080604
  7. ATENOLOL [Concomitant]
     Indication: HYPERTENSION
     Dosage: DAILY
     Dates: start: 20071030
  8. METFORMIN [Concomitant]
     Indication: TYPE 2 DIABETES MELLITUS
     Dates: start: 20071030
  9. GLUCOMED [Concomitant]
     Indication: TYPE 2 DIABETES MELLITUS
     Dates: start: 20071030
  10. VESICARE [Concomitant]
     Indication: URINARY INCONTINENCE
     Dosage: DAILY
     Dates: start: 20080423, end: 20080601

REACTIONS (2)
  - DECUBITUS ULCER [None]
  - PYREXIA [None]
